FAERS Safety Report 8910606 (Version 1)
Quarter: 2012Q4

REPORT INFORMATION
  Report Type: Report from Study
  Country: DE (occurrence: DE)
  Receive Date: 20121114
  Receipt Date: 20121114
  Transmission Date: 20130627
  Serious: Yes (Hospitalization)
  Sender: FDA-Public Use
  Company Number: DE-GLAXOSMITHKLINE-B0626873A

PATIENT
  Age: 41 Year
  Sex: Female
  Weight: 53 kg

DRUGS (5)
  1. LAPATINIB [Suspect]
     Indication: BREAST CANCER
     Dosage: 1250MG Per day
     Route: 048
     Dates: start: 20091226
  2. MYOCET [Suspect]
     Indication: BREAST CANCER
     Dosage: 60MG Every 3 weeks
     Route: 042
     Dates: start: 20091226
  3. PACLITAXEL [Suspect]
     Indication: BREAST CANCER
     Dosage: 175MG Every 3 weeks
     Route: 042
     Dates: start: 20091226
  4. LOPERAMIDE [Concomitant]
     Indication: DIARRHOEA
     Dosage: 20MG Per day
     Route: 048
     Dates: start: 20100115, end: 20100116
  5. MCP [Concomitant]
     Indication: NAUSEA
     Route: 048
     Dates: start: 20100115, end: 20100119

REACTIONS (1)
  - Febrile neutropenia [Recovered/Resolved]
